FAERS Safety Report 14141791 (Version 1)
Quarter: 2017Q4

REPORT INFORMATION
  Report Type: Spontaneous
  Country: US (occurrence: US)
  Receive Date: 20171030
  Receipt Date: 20171030
  Transmission Date: 20180321
  Serious: No
  Sender: FDA-Public Use
  Company Number: US-ELI_LILLY_AND_COMPANY-US201710005255

PATIENT

DRUGS (1)
  1. TALTZ [Suspect]
     Active Substance: IXEKIZUMAB
     Indication: PSORIASIS
     Dosage: 2 INJECTIONS OF 80 MG, UNK
     Route: 065

REACTIONS (2)
  - Dysgeusia [Unknown]
  - Injection site pain [Unknown]

NARRATIVE: CASE EVENT DATE: 20171004
